FAERS Safety Report 5311704-0 (Version None)
Quarter: 2007Q2

REPORT INFORMATION
  Report Type: 
  Country: None (occurrence: None)
  Receive Date: 20070426
  Receipt Date: 20070426
  Transmission Date: 20071010
  Serious: Yes (Hospitalization)
  Sender: FDA-Public Use
  Company Number: None

PATIENT
  Age: 64 Year
  Sex: Male

DRUGS (1)
  1. SULFAMETHOXAZOLE AND TRIMETHOPRIM [Suspect]
     Dosage: 400/80MG EVERY DAY PO
     Route: 048
     Dates: start: 20061213, end: 20061224

REACTIONS (2)
  - EOSINOPHILIA [None]
  - RASH [None]
